FAERS Safety Report 9292636 (Version 2)
Quarter: 2013Q3

REPORT INFORMATION
  Report Type: Spontaneous
  Country: GB (occurrence: GB)
  Receive Date: 20130516
  Receipt Date: 20130725
  Transmission Date: 20140515
  Serious: Yes (Death)
  Sender: FDA-Public Use
  Company Number: PHFR2013GB002838

PATIENT
  Sex: Female

DRUGS (1)
  1. AFINITOR [Suspect]
     Route: 048

REACTIONS (1)
  - Pneumonitis [Fatal]
